FAERS Safety Report 14651555 (Version 1)
Quarter: 2018Q1

REPORT INFORMATION
  Report Type: Spontaneous
  Country: US (occurrence: US)
  Receive Date: 20180317
  Receipt Date: 20180317
  Transmission Date: 20180509
  Serious: No
  Sender: FDA-Public Use
  Company Number: US-HETERO CORPORATE-HET2018US00163

PATIENT
  Sex: Female

DRUGS (1)
  1. MONTELUKAST [Suspect]
     Active Substance: MONTELUKAST SODIUM
     Indication: HYPERSENSITIVITY
     Dosage: 10 MG, QD
     Route: 065
     Dates: start: 20180306

REACTIONS (2)
  - Pharyngeal hypoaesthesia [Not Recovered/Not Resolved]
  - Hypoaesthesia oral [Not Recovered/Not Resolved]

NARRATIVE: CASE EVENT DATE: 20180307
